FAERS Safety Report 23169305 (Version 1)
Quarter: 2023Q4

REPORT INFORMATION
  Report Type: Spontaneous
  Country: US (occurrence: US)
  Receive Date: 20231110
  Receipt Date: 20231110
  Transmission Date: 20240110
  Serious: Yes (Other)
  Sender: FDA-Public Use
  Company Number: US-009507513-2311USA001735

PATIENT
  Age: 11 Year
  Weight: 19 kg

DRUGS (1)
  1. PREVYMIS [Suspect]
     Active Substance: LETERMOVIR
     Dosage: 120 MILLIGRAM

REACTIONS (3)
  - Cytomegalovirus viraemia [Unknown]
  - Product administered to patient of inappropriate age [Unknown]
  - Incorrect dosage administered [Unknown]
